FAERS Safety Report 11893554 (Version 3)
Quarter: 2016Q1

REPORT INFORMATION
  Report Type: Not Available
  Country: IT (occurrence: IT)
  Receive Date: 20160106
  Receipt Date: 20160317
  Transmission Date: 20160526
  Serious: Yes (Hospitalization, Other)
  Sender: FDA-Public Use
  Company Number: IT-MUNDIPHARMA DS AND PHARMACOVIGILANCE-GBR-2015-0033165

PATIENT
  Age: 35 Year
  Sex: Female

DRUGS (2)
  1. PARACETAMOL [Concomitant]
     Active Substance: ACETAMINOPHEN
     Indication: CHEST PAIN
     Dosage: 500 MG, DAILY
     Route: 048
     Dates: start: 20151112, end: 20151112
  2. TARGIN COMPRESSA A RILASCIO PROLUNGATO CONTIENE 5MG/2,5MG [Suspect]
     Active Substance: NALOXONE HYDROCHLORIDE\OXYCODONE HYDROCHLORIDE
     Indication: PAIN
     Dosage: 5 MG, DAILY
     Route: 048
     Dates: start: 20151112, end: 20151112

REACTIONS (8)
  - Disturbance in attention [Recovered/Resolved]
  - Eye movement disorder [Unknown]
  - Mucosal dryness [Recovered/Resolved]
  - Vomiting [Unknown]
  - Tremor [Recovered/Resolved]
  - Agitation [Recovered/Resolved]
  - Crying [Recovered/Resolved]
  - Negative thoughts [Recovered/Resolved]

NARRATIVE: CASE EVENT DATE: 20151112
